FAERS Safety Report 19097420 (Version 9)
Quarter: 2023Q4

REPORT INFORMATION
  Report Type: Spontaneous
  Country: US (occurrence: US)
  Receive Date: 20210406
  Receipt Date: 20231115
  Transmission Date: 20240109
  Serious: No
  Sender: FDA-Public Use
  Company Number: US-PFIZER INC-2021274395

PATIENT
  Age: 60 Year
  Sex: Female

DRUGS (4)
  1. LORBRENA [Suspect]
     Active Substance: LORLATINIB
     Indication: Non-small cell lung cancer
     Dosage: 25 MG
  2. LORBRENA [Suspect]
     Active Substance: LORLATINIB
     Dosage: 75 MG, CYCLIC (75 MG ONCE DAILY FOR DAYS 1-28 FOR A 28 DAY CYCLE)
     Route: 048
  3. LORBRENA [Suspect]
     Active Substance: LORLATINIB
     Dosage: 100 MG
  4. LORBRENA [Suspect]
     Active Substance: LORLATINIB
     Dosage: 25 MG TABLET 3 P.O.Q. DAY
     Route: 048

REACTIONS (2)
  - Musculoskeletal disorder [Unknown]
  - Flatulence [Unknown]
